FAERS Safety Report 8554692-6 (Version None)
Quarter: 2012Q3

REPORT INFORMATION
  Report Type: 
  Country: None (occurrence: None)
  Receive Date: 20120731
  Receipt Date: 20120730
  Transmission Date: 20120928
  Serious: Yes (Other)
  Sender: FDA-Public Use
  Company Number: PHHY2010CA16427

PATIENT
  Sex: Male

DRUGS (4)
  1. NOVORAPID [Concomitant]
  2. SANDOSTATIN LAR [Suspect]
     Dosage: 20 MG, QMO
     Route: 030
  3. SANDOSTATIN LAR [Suspect]
     Indication: ACROMEGALY
     Dosage: 20 MG, QMO
     Route: 030
     Dates: start: 20100217, end: 20100317
  4. SANDOSTATIN LAR [Suspect]
     Dosage: 10 MG, UNK
     Route: 030

REACTIONS (17)
  - AMNESIA [None]
  - INJECTION SITE HAEMORRHAGE [None]
  - FATIGUE [None]
  - SOMNOLENCE [None]
  - DECREASED APPETITE [None]
  - PRURITUS [None]
  - BLOOD GLUCOSE DECREASED [None]
  - BLOOD GLUCOSE FLUCTUATION [None]
  - ARTHRALGIA [None]
  - HYPERHIDROSIS [None]
  - OEDEMA PERIPHERAL [None]
  - WEIGHT INCREASED [None]
  - FAECES DISCOLOURED [None]
  - ABDOMINAL DISTENSION [None]
  - DIARRHOEA [None]
  - ALOPECIA [None]
  - INJECTION SITE PAIN [None]
